FAERS Safety Report 12080029 (Version 1)
Quarter: 2016Q1

REPORT INFORMATION
  Report Type: Spontaneous
  Country: US (occurrence: None)
  Receive Date: 20160212
  Receipt Date: 20160212
  Transmission Date: 20160526
  Serious: Yes (Other)
  Sender: FDA-Public Use
  Company Number: None

PATIENT
  Age: 21 Year
  Sex: Female
  Weight: 61.24 kg

DRUGS (1)
  1. REMICADE [Suspect]
     Active Substance: INFLIXIMAB
     Indication: CROHN^S DISEASE
     Dosage: 10 MG/KG EVERY 6 WKS IV
     Route: 042
     Dates: start: 20151006

REACTIONS (2)
  - Pruritus [None]
  - Dry skin [None]

NARRATIVE: CASE EVENT DATE: 20151224
